FAERS Safety Report 7428110-5 (Version None)
Quarter: 2011Q2

REPORT INFORMATION
  Report Type: 
  Country: None (occurrence: None)
  Receive Date: 20110418
  Receipt Date: 20110418
  Transmission Date: 20111010
  Serious: No
  Sender: FDA-Public Use
  Company Number: None

PATIENT
  Age: 20 Year
  Sex: Female

DRUGS (2)
  1. CLOMIPRAMINE HCL [Suspect]
     Indication: DEPRESSION
     Dosage: 1 TAB QDAY PO } 3 MONTHS
     Route: 048
  2. ESCITALOPRAM [Suspect]
     Indication: DEPRESSION
     Dosage: 1 TAB QDAY PO } 3 MONTHS
     Route: 048

REACTIONS (5)
  - TACHYCARDIA [None]
  - SUICIDAL IDEATION [None]
  - HYPERREFLEXIA [None]
  - SEROTONIN SYNDROME [None]
  - ELECTROCARDIOGRAM QT PROLONGED [None]
